FAERS Safety Report 15780149 (Version 1)
Quarter: 2019Q1

REPORT INFORMATION
  Report Type: Spontaneous
  Country: GB (occurrence: GB)
  Receive Date: 20190102
  Receipt Date: 20190102
  Transmission Date: 20190417
  Serious: Yes (Other)
  Sender: FDA-Public Use
  Company Number: GB-ALKEM LABORATORIES LIMITED-GB-ALKEM-2018-00239

PATIENT
  Age: 49 Year
  Sex: Female

DRUGS (5)
  1. PEMBROLIZUMAB. [Concomitant]
     Active Substance: PEMBROLIZUMAB
     Indication: METASTASES TO CENTRAL NERVOUS SYSTEM
     Dosage: 2 MG/KG, THREE WEEKLY CYCLES
     Route: 042
  2. METHYLPREDNISOLONE. [Concomitant]
     Active Substance: METHYLPREDNISOLONE
     Indication: AUTOIMMUNE HEPATITIS
     Dosage: 2 MG/KG, ESCALATION TO 2MG/KG DOSE OF (METHYL) PREDNISOLONE
     Route: 065
  3. URSODEOXYCHOLIC ACID [Concomitant]
     Active Substance: URSODIOL
     Indication: VANISHING BILE DUCT SYNDROME
     Dosage: UNK
     Route: 065
  4. MYCOPHENOLATE MOFETIL. [Suspect]
     Active Substance: MYCOPHENOLATE MOFETIL
     Indication: VANISHING BILE DUCT SYNDROME
     Dosage: 1 G, BID
     Route: 048
  5. PREDNISOLONE. [Concomitant]
     Active Substance: PREDNISOLONE
     Indication: AUTOIMMUNE HEPATITIS
     Dosage: APPROX 1 MG/KG ONCE DAILY ORALLY
     Route: 048

REACTIONS (2)
  - Drug ineffective [Unknown]
  - Neutropenia [Unknown]
